APPROVED DRUG PRODUCT: DICLOFENAC SODIUM
Active Ingredient: DICLOFENAC SODIUM
Strength: 75MG
Dosage Form/Route: TABLET, DELAYED RELEASE;ORAL
Application: A075185 | Product #001 | TE Code: AB
Applicant: CARLSBAD TECHNOLOGY INC
Approved: Nov 13, 1998 | RLD: No | RS: No | Type: RX